FAERS Safety Report 5724972-8 (Version None)
Quarter: 2008Q2

REPORT INFORMATION
  Report Type: 
  Country: None (occurrence: None)
  Receive Date: 20080501
  Receipt Date: 20080424
  Transmission Date: 20081010
  Serious: Yes (Other)
  Sender: FDA-Public Use
  Company Number: US-AVENTIS-200717458US

PATIENT
  Sex: Female

DRUGS (4)
  1. ARAVA [Suspect]
     Indication: RHEUMATOID ARTHRITIS
     Dates: start: 20071013, end: 20071213
  2. VICODIN [Concomitant]
     Indication: PAIN
     Dosage: DOSE: 1TABLET, 5 MG/500 MG, EVERY 4-6 HRS
  3. MINOCYCLINE HCL [Concomitant]
     Indication: ROSACEA
     Dosage: DOSE QUANTITY: 1
  4. NABUMETONE [Concomitant]
     Indication: ARTHRITIS
     Dosage: DOSE: 2 DAILY, 750 MG

REACTIONS (8)
  - ARTHRALGIA [None]
  - BLOOD GLUCOSE INCREASED [None]
  - CHILLS [None]
  - HEPATIC ENZYME INCREASED [None]
  - NIGHT SWEATS [None]
  - OEDEMA PERIPHERAL [None]
  - PAIN [None]
  - SKIN NODULE [None]
